FAERS Safety Report 14801175 (Version 1)
Quarter: 2018Q2

REPORT INFORMATION
  Report Type: Spontaneous
  Country: IT (occurrence: IT)
  Receive Date: 20180424
  Receipt Date: 20180424
  Transmission Date: 20180711
  Serious: Yes (Other)
  Sender: FDA-Public Use
  Company Number: IT-MYLANLABS-2018M1024969

PATIENT
  Age: 54 Year
  Sex: Male

DRUGS (4)
  1. BORTEZOMIB [Concomitant]
     Active Substance: BORTEZOMIB
     Indication: AMYLOIDOSIS
     Dosage: UNK 1.3 MG/SQM PER DAY (ON THE 1ST, 4TH, 8TH, AND 11TH DAY OF EVERY 21 DAYS COURSE FOL
  2. DEXAMETHASONE. [Suspect]
     Active Substance: DEXAMETHASONE
     Dosage: 20 MG, PER DAY (FOR 4 DAYS) (ON THE 1ST, 4TH, 8TH, AND 11TH DAY OF EVERY 21 DAYS COURSE), CYCLIC
     Dates: start: 200608, end: 200703
  3. DEXAMETHASONE. [Suspect]
     Active Substance: DEXAMETHASONE
     Indication: AMYLOIDOSIS
     Dosage: 20 MG, CYCLIC (1ST, 4TH, 8TH, AND 11TH DAY OF EVERY 21 DAYS)
     Dates: start: 200706, end: 200801
  4. MELPHALAN. [Suspect]
     Active Substance: MELPHALAN
     Indication: AMYLOIDOSIS
     Dosage: 14 MG, CYCLIC PER DAY(FOR 4 DAYS)
     Dates: start: 200608, end: 200703

REACTIONS (1)
  - Leukopenia [Unknown]
